FAERS Safety Report 5410437-X (Version None)
Quarter: 2007Q3

REPORT INFORMATION
  Report Type: 
  Country: None (occurrence: None)
  Receive Date: 20070810
  Receipt Date: 20070802
  Transmission Date: 20080115
  Serious: Yes (Hospitalization)
  Sender: FDA-Public Use
  Company Number: DEWYE027616JUL07

PATIENT
  Age: 31 Year
  Sex: Male

DRUGS (1)
  1. VENLAFAXINE HCL [Suspect]
     Dosage: 7 CAPSULES EACH CAPSULE 150 MG (OVERDOSE AMOUNT 1050 MG)
     Route: 048
     Dates: start: 20070712, end: 20070713

REACTIONS (4)
  - DRUG ABUSER [None]
  - FATIGUE [None]
  - INTENTIONAL OVERDOSE [None]
  - VOMITING [None]
